FAERS Safety Report 19890696 (Version 1)
Quarter: 2021Q3

REPORT INFORMATION
  Report Type: Report from Study
  Country: IT (occurrence: IT)
  Receive Date: 20210927
  Receipt Date: 20210927
  Transmission Date: 20211014
  Serious: Yes (Death, Other)
  Sender: FDA-Public Use
  Company Number: IT-PURDUE-USA-2021-0285188

PATIENT
  Age: 92 Year
  Sex: Female

DRUGS (4)
  1. DIAZEPAM. [Suspect]
     Active Substance: DIAZEPAM
     Indication: PRODUCT USED FOR UNKNOWN INDICATION
     Route: 042
  2. NON?PMN MORPHINE SULFATE [Suspect]
     Active Substance: MORPHINE SULFATE
     Indication: HOMICIDE
     Dosage: 2 MG UNK
     Route: 042
  3. SALINE                             /00075401/ [Concomitant]
     Active Substance: SODIUM CHLORIDE
     Indication: PRODUCT USED FOR UNKNOWN INDICATION
     Dosage: 500 CC
     Route: 065
  4. UNIFOL                             /00700101/ [Suspect]
     Active Substance: PROPOFOL
     Indication: HOMICIDE
     Dosage: STRENGTH 20 MG/ML
     Route: 042

REACTIONS (1)
  - Septic shock [Fatal]
